FAERS Safety Report 14829377 (Version 6)
Quarter: 2018Q3

REPORT INFORMATION
  Report Type: Spontaneous
  Country: GB (occurrence: GB)
  Receive Date: 20180430
  Receipt Date: 20180727
  Transmission Date: 20181010
  Serious: Yes (Hospitalization, Other)
  Sender: FDA-Public Use
  Company Number: GB-PFIZER INC-2018164902

PATIENT
  Sex: Female

DRUGS (4)
  1. FULVESTRANT. [Suspect]
     Active Substance: FULVESTRANT
     Dosage: UNK
     Route: 065
     Dates: start: 201605
  2. PACLITAXEL. [Concomitant]
     Active Substance: PACLITAXEL
     Dosage: 1 DF, WEEKLY (1 OT, QW)
     Route: 065
  3. ZOLEDRONIC ACID [Suspect]
     Active Substance: ZOLEDRONIC ACID
     Indication: BREAST CANCER STAGE IV
     Dosage: UNK
     Route: 065
     Dates: start: 201605
  4. TAMOXIFEN [Concomitant]
     Active Substance: TAMOXIFEN
     Dosage: UNK
     Route: 065
     Dates: start: 201704

REACTIONS (7)
  - Spinal cord compression [Unknown]
  - BRAF gene mutation [Unknown]
  - Bone pain [Unknown]
  - Blood alkaline phosphatase increased [Unknown]
  - Bone disorder [Unknown]
  - Neoplasm progression [Unknown]
  - Back pain [Unknown]

NARRATIVE: CASE EVENT DATE: 201609
